FAERS Safety Report 17669588 (Version 1)
Quarter: 2020Q2

REPORT INFORMATION
  Report Type: Report from Study
  Country: None (occurrence: US)
  Receive Date: 20200415
  Receipt Date: 20200415
  Transmission Date: 20200713
  Serious: Yes (Hospitalization)
  Sender: FDA-Public Use
  Company Number: US-ABBVIE-20P-163-3358086-00

PATIENT
  Sex: Male

DRUGS (1)
  1. IMBRUVICA [Suspect]
     Active Substance: IBRUTINIB
     Indication: CYTOMEGALOVIRUS INFECTION
     Route: 048
     Dates: start: 202001

REACTIONS (8)
  - Ulcer [Not Recovered/Not Resolved]
  - Dyspnoea [Unknown]
  - Constipation [Unknown]
  - Diarrhoea [Unknown]
  - Productive cough [Unknown]
  - Toothache [Unknown]
  - Urinary tract infection [Unknown]
  - Respiratory disorder [Unknown]
